FAERS Safety Report 6733844-1 (Version None)
Quarter: 2010Q2

REPORT INFORMATION
  Report Type: 
  Country: None (occurrence: None)
  Receive Date: 20100520
  Receipt Date: 20100511
  Transmission Date: 20101027
  Serious: Yes (Other)
  Sender: FDA-Public Use
  Company Number: US-AMGEN-KDL412136

PATIENT
  Sex: Male
  Weight: 103.5 kg

DRUGS (9)
  1. PROCRIT [Suspect]
     Indication: ANAEMIA
     Route: 058
     Dates: start: 20100301
  2. UNSPECIFIED NUTRITIONAL SUPPLEMENT [Concomitant]
  3. HYDROXYZINE [Concomitant]
  4. FUROSEMIDE [Concomitant]
  5. ALLOPURINOL [Concomitant]
  6. TOPROL-XL [Concomitant]
  7. ADVAIR DISKUS 100/50 [Concomitant]
  8. SPIRONOLACTONE [Concomitant]
  9. GLIMEPIRIDE [Concomitant]

REACTIONS (3)
  - CELLULITIS [None]
  - HYPERSENSITIVITY [None]
  - SEPSIS [None]
